FAERS Safety Report 18120626 (Version 1)
Quarter: 2020Q3

REPORT INFORMATION
  Report Type: Spontaneous
  Country: GB (occurrence: GB)
  Receive Date: 20200806
  Receipt Date: 20200806
  Transmission Date: 20201103
  Serious: Yes (Disabling, Other)
  Sender: FDA-Public Use
  Company Number: GB-ELI_LILLY_AND_COMPANY-GB202007011593

PATIENT
  Age: 18 Year
  Sex: Female
  Weight: 63.5 kg

DRUGS (1)
  1. FLUOXETINE [Suspect]
     Active Substance: FLUOXETINE HYDROCHLORIDE
     Indication: DEPRESSION
     Dosage: 20 MG, UNKNOWN
     Route: 048
     Dates: start: 20200702, end: 20200714

REACTIONS (2)
  - Pain [Unknown]
  - Persistent genital arousal disorder [Not Recovered/Not Resolved]

NARRATIVE: CASE EVENT DATE: 20200711
